FAERS Safety Report 9967089 (Version 4)
Quarter: 2014Q1

REPORT INFORMATION
  Report Type: Spontaneous
  Country: DE (occurrence: DE)
  Receive Date: 20140305
  Receipt Date: 20140331
  Transmission Date: 20141002
  Serious: Yes (Life-Threatening, Hospitalization)
  Sender: FDA-Public Use
  Company Number: US-ASTRAZENECA-2014SE15132

PATIENT
  Age: 11 Month
  Sex: Male

DRUGS (18)
  1. SYNAGIS [Suspect]
     Indication: PREMATURE DELIVERY
     Route: 030
  2. SYNAGIS [Suspect]
     Indication: BRONCHOPULMONARY DYSPLASIA
     Route: 030
  3. SYNAGIS [Suspect]
     Indication: PREMATURE DELIVERY
     Route: 030
     Dates: start: 20131004, end: 20131004
  4. SYNAGIS [Suspect]
     Indication: BRONCHOPULMONARY DYSPLASIA
     Route: 030
     Dates: start: 20131004, end: 20131004
  5. SYNAGIS [Suspect]
     Indication: PREMATURE DELIVERY
     Route: 030
     Dates: start: 20131030, end: 20131030
  6. SYNAGIS [Suspect]
     Indication: BRONCHOPULMONARY DYSPLASIA
     Route: 030
     Dates: start: 20131030, end: 20131030
  7. SYNAGIS [Suspect]
     Indication: PREMATURE DELIVERY
     Route: 030
     Dates: start: 20131205, end: 20131205
  8. SYNAGIS [Suspect]
     Indication: BRONCHOPULMONARY DYSPLASIA
     Route: 030
     Dates: start: 20131205, end: 20131205
  9. SYNAGIS [Suspect]
     Indication: PREMATURE DELIVERY
     Route: 030
     Dates: start: 20140107, end: 20140107
  10. SYNAGIS [Suspect]
     Indication: BRONCHOPULMONARY DYSPLASIA
     Route: 030
     Dates: start: 20140107, end: 20140107
  11. SYNAGIS [Suspect]
     Indication: PREMATURE DELIVERY
     Route: 030
     Dates: start: 20140129, end: 20140129
  12. SYNAGIS [Suspect]
     Indication: BRONCHOPULMONARY DYSPLASIA
     Route: 030
     Dates: start: 20140129, end: 20140129
  13. SYNAGIS [Suspect]
     Indication: PREMATURE DELIVERY
     Route: 030
     Dates: start: 20140225, end: 20140225
  14. SYNAGIS [Suspect]
     Indication: BRONCHOPULMONARY DYSPLASIA
     Route: 030
     Dates: start: 20140225, end: 20140225
  15. COLECALCIFEROL/SODIUM FLUORIDE (D-FLUORETTE) [Concomitant]
     Indication: PRODUCT USED FOR UNKNOWN INDICATION
     Route: 048
  16. SILDENAFIL [Concomitant]
     Indication: PRODUCT USED FOR UNKNOWN INDICATION
  17. HYDROCORTISONE [Concomitant]
     Indication: PRODUCT USED FOR UNKNOWN INDICATION
  18. L-THYROXIN [Concomitant]
     Indication: PRODUCT USED FOR UNKNOWN INDICATION

REACTIONS (8)
  - Cardiac arrest [Recovered/Resolved]
  - Convulsion [Recovered/Resolved]
  - Bradycardia [Recovered/Resolved]
  - Inguinal hernia [Unknown]
  - Hypertension [Unknown]
  - Tachypnoea [Unknown]
  - Hydrocele [Unknown]
  - Hypersensitivity [Unknown]
